FAERS Safety Report 19074564 (Version 1)
Quarter: 2021Q1

REPORT INFORMATION
  Report Type: Spontaneous
  Country: US (occurrence: US)
  Receive Date: 20210330
  Receipt Date: 20210330
  Transmission Date: 20210420
  Serious: No
  Sender: FDA-Public Use
  Company Number: US-ROCHE-2652885

PATIENT
  Age: 75 Year
  Sex: Male

DRUGS (1)
  1. ERIVEDGE [Suspect]
     Active Substance: VISMODEGIB
     Indication: BASAL CELL CARCINOMA
     Route: 065
     Dates: start: 202001, end: 20200605

REACTIONS (5)
  - Weight decreased [Unknown]
  - Confusional state [Not Recovered/Not Resolved]
  - Decreased appetite [Recovering/Resolving]
  - Ageusia [Unknown]
  - Amnesia [Not Recovered/Not Resolved]
